FAERS Safety Report 9474862 (Version 1)
Quarter: 2013Q3

REPORT INFORMATION
  Report Type: Spontaneous
  Country: DE (occurrence: DE)
  Receive Date: 20130823
  Receipt Date: 20130823
  Transmission Date: 20140515
  Serious: Yes (Other)
  Sender: FDA-Public Use
  Company Number: DE-ASTRAZENECA-2013SE64575

PATIENT
  Age: 25 Year
  Sex: Female
  Weight: 94 kg

DRUGS (2)
  1. BELOC-ZOK MITE [Suspect]
     Indication: HYPERTENSION
     Route: 048
  2. FOLIC ACID [Suspect]
     Indication: PROPHYLAXIS OF NEURAL TUBE DEFECT

REACTIONS (4)
  - Exposure during pregnancy [Unknown]
  - Ligament rupture [Unknown]
  - Proteinuria [Unknown]
  - Anaemia [Unknown]
